FAERS Safety Report 10741416 (Version 2)
Quarter: 2015Q3

REPORT INFORMATION
  Report Type: Spontaneous
  Country: US (occurrence: None)
  Receive Date: 20150123
  Receipt Date: 20150706
  Transmission Date: 20151125
  Serious: Yes (Other)
  Sender: FDA-Public Use
  Company Number: US-SEPTODONT-201502445

PATIENT
  Age: 30 Year
  Sex: Male

DRUGS (4)
  1. MARCAINE (BUPIVACAINE HYDROCHLORIDE; EPINEPHRINE BITARTRATE) [Concomitant]
  2. LIDOCAINE HYDROCHLORIDE 2% WITH EPINEPHRINE 1:100,000 INJECTION LIDOCAINE HYDROCHLORIDE; EPINEPHRINE BITARTRATE [Suspect]
     Active Substance: EPINEPHRINE\LIDOCAINE HYDROCHLORIDE
     Indication: LOCAL ANAESTHESIA
     Dosage: 3 DF, TOTAL
     Route: 004
     Dates: start: 20140805, end: 20140805
  3. BENZOCAINE. [Concomitant]
     Active Substance: BENZOCAINE
  4. SEPTOCAINE AND EPINEPHRINE [Suspect]
     Active Substance: ARTICAINE HYDROCHLORIDE\EPINEPHRINE BITARTRATE
     Indication: LOCAL ANAESTHESIA
     Dosage: 2 DF, TOTAL
     Route: 004
     Dates: start: 20140805, end: 20140805

REACTIONS (4)
  - Tooth abscess [None]
  - Needle issue [None]
  - Post procedural complication [None]
  - Pain in jaw [None]

NARRATIVE: CASE EVENT DATE: 20140805
